FAERS Safety Report 17100907 (Version 1)
Quarter: 2019Q4

REPORT INFORMATION
  Report Type: Spontaneous
  Country: US (occurrence: US)
  Receive Date: 20191202
  Receipt Date: 20191202
  Transmission Date: 20200122
  Serious: Yes (Other)
  Sender: FDA-Public Use
  Company Number: US-SA-2019SA329410

PATIENT
  Age: 45 Year
  Sex: Female
  Weight: 74.8 kg

DRUGS (11)
  1. OXTELLAR XR [Concomitant]
     Active Substance: OXCARBAZEPINE
     Dosage: 3 DF, QD
     Route: 048
     Dates: start: 20191029
  2. FABRAZYME [Suspect]
     Active Substance: AGALSIDASE BETA
     Indication: FABRY^S DISEASE
     Dosage: 70 MG, QW
     Route: 041
     Dates: start: 20120314
  3. ACETAMINOPHEN. [Concomitant]
     Active Substance: ACETAMINOPHEN
     Dosage: 650 MG, UNK
     Route: 048
     Dates: start: 20191106
  4. STERILE WATER [Concomitant]
     Active Substance: WATER
     Dosage: 1 DF, UNK
     Route: 065
     Dates: start: 20191106
  5. OXTELLAR XR [Concomitant]
     Active Substance: OXCARBAZEPINE
     Dosage: 1 DF, QD
     Route: 048
     Dates: start: 20191029
  6. EPINEPHRINE. [Concomitant]
     Active Substance: EPINEPHRINE
     Dosage: 0.3 MG, PRN
     Route: 030
     Dates: start: 20191106
  7. BOTOX [Concomitant]
     Active Substance: ONABOTULINUMTOXINA
     Dosage: 1 DF, Q3M
     Route: 058
     Dates: start: 20191029
  8. LEVOTHYROXINE. [Concomitant]
     Active Substance: LEVOTHYROXINE
     Dosage: 1 DF, QD
     Route: 048
     Dates: start: 20191029
  9. DIPHENHYDRAMINE. [Concomitant]
     Active Substance: DIPHENHYDRAMINE
     Dosage: 25 MG, UNK
     Route: 048
     Dates: start: 20191106
  10. SODIUM CHLORIDE. [Concomitant]
     Active Substance: SODIUM CHLORIDE
     Dosage: 0.90 %, UNK
     Route: 042
     Dates: start: 20191106
  11. NORMAL SALINE [Concomitant]
     Active Substance: SODIUM CHLORIDE
     Dosage: 0.90 %, UNK
     Route: 042

REACTIONS (2)
  - Transfusion [Unknown]
  - Hysterectomy [Unknown]

NARRATIVE: CASE EVENT DATE: 20190911
